FAERS Safety Report 5233422-X (Version None)
Quarter: 2007Q1

REPORT INFORMATION
  Report Type: 
  Country: None (occurrence: None)
  Receive Date: 20070206
  Receipt Date: 20070129
  Transmission Date: 20070707
  Serious: Yes (Death, Life-Threatening)
  Sender: FDA-Public Use
  Company Number: 200612AGG00524

PATIENT
  Age: 84 Year
  Sex: Female

DRUGS (8)
  1. TIROFIBAN HYDROCHLORIDE (TIROFIBAN HYDROCHLORIDE) (0.4 MCG/KG, 0.1 MCG [Suspect]
     Indication: ANGINA UNSTABLE
     Dosage: SEE IMAGE
     Dates: start: 20060818, end: 20060818
  2. TIROFIBAN HYDROCHLORIDE (TIROFIBAN HYDROCHLORIDE) (0.4 MCG/KG, 0.1 MCG [Suspect]
     Indication: ANGINA UNSTABLE
     Dosage: SEE IMAGE
     Dates: start: 20060818, end: 20060821
  3. CLOPIDOGREL BISULFATE [Concomitant]
  4. METFORMIN HCL [Concomitant]
  5. HEPARIN [Concomitant]
  6. ASPIRIN [Concomitant]
  7. CLEXANE [Concomitant]
  8. ASPEGIC 1000 [Concomitant]

REACTIONS (3)
  - CARDIAC PROCEDURE COMPLICATION [None]
  - CORONARY ARTERY STENOSIS [None]
  - ELECTROMECHANICAL DISSOCIATION [None]
